FAERS Safety Report 8072018-1 (Version None)
Quarter: 2012Q1

REPORT INFORMATION
  Report Type: 
  Country: None (occurrence: None)
  Receive Date: 20120124
  Receipt Date: 20120124
  Transmission Date: 20120608
  Serious: Yes (Life-Threatening, Hospitalization, Disabling, Other)
  Sender: FDA-Public Use
  Company Number: None

PATIENT
  Sex: Female
  Weight: 72.7 kg

DRUGS (1)
  1. ZOFRAN [Suspect]
     Indication: NAUSEA
     Dosage: ZOFRAN 8MG X1 RAPID IV PUSH
     Route: 042
     Dates: start: 20111228

REACTIONS (4)
  - COMA [None]
  - MEMORY IMPAIRMENT [None]
  - CARDIAC ARREST [None]
  - DEEP VEIN THROMBOSIS [None]
